FAERS Safety Report 13945305 (Version 1)
Quarter: 2017Q3

REPORT INFORMATION
  Report Type: Spontaneous
  Country: US (occurrence: US)
  Receive Date: 20170907
  Receipt Date: 20170907
  Transmission Date: 20171128
  Serious: No
  Sender: FDA-Public Use
  Company Number: US-PFIZER INC-2017380448

PATIENT
  Age: 19 Year
  Sex: Female

DRUGS (1)
  1. PRAZOSIN HCL [Suspect]
     Active Substance: PRAZOSIN HYDROCHLORIDE
     Indication: POSTPARTUM STRESS DISORDER
     Dosage: 3 MG, 1X/DAY(3 CAPSULE(S), 1 TIME(S) PER DAY, BY MOUTH AT BEDTIME )
     Route: 048

REACTIONS (2)
  - Product use in unapproved indication [Unknown]
  - Dizziness [Unknown]
